FAERS Safety Report 7199100-5 (Version None)
Quarter: 2010Q4

REPORT INFORMATION
  Report Type: 
  Country: None (occurrence: None)
  Receive Date: 20101126
  Receipt Date: 20100908
  Transmission Date: 20110411
  Serious: Yes (Other)
  Sender: FDA-Public Use
  Company Number: CIP10002147

PATIENT
  Age: 65 Year
  Sex: Female

DRUGS (5)
  1. ACTONEL [Suspect]
     Dosage: 150 MG, ONCE A MONTH, ORAL
     Route: 048
     Dates: start: 20090601, end: 20100601
  2. OMEPRAZOLE [Concomitant]
  3. AVALIDE [Concomitant]
  4. CALCIUM (CALCIUM) [Concomitant]
  5. ERGOCALCIFEROL [Concomitant]

REACTIONS (1)
  - PERFORATED ULCER [None]
